FAERS Safety Report 18975669 (Version 2)
Quarter: 2021Q1

REPORT INFORMATION
  Report Type: Spontaneous
  Country: US (occurrence: US)
  Receive Date: 20210305
  Receipt Date: 20210316
  Transmission Date: 20210420
  Serious: No
  Sender: FDA-Public Use
  Company Number: US-009507513-2103USA000590

PATIENT
  Sex: Female

DRUGS (1)
  1. DIFICID [Suspect]
     Active Substance: FIDAXOMICIN
     Indication: CLOSTRIDIUM DIFFICILE INFECTION
     Dosage: 200MG BY MOUTH TWICE DAILY
     Route: 048
     Dates: start: 20210206, end: 20210214

REACTIONS (5)
  - Product dose omission issue [Unknown]
  - Product packaging issue [Unknown]
  - Drug ineffective [Unknown]
  - Product packaging quantity issue [Unknown]
  - Product supply issue [Unknown]

NARRATIVE: CASE EVENT DATE: 2021
